FAERS Safety Report 9423646 (Version 1)
Quarter: 2013Q3

REPORT INFORMATION
  Report Type: Spontaneous
  Country: IE (occurrence: IE)
  Receive Date: 20130726
  Receipt Date: 20130726
  Transmission Date: 20140515
  Serious: No
  Sender: FDA-Public Use
  Company Number: IE-009507513-1307IRL013127

PATIENT
  Age: 50 Year
  Sex: Male

DRUGS (1)
  1. SYCREST [Suspect]
     Dosage: 10 MG, BID
     Route: 060

REACTIONS (1)
  - Rash [Recovered/Resolved]
